FAERS Safety Report 21419178 (Version 1)
Quarter: 2022Q4

REPORT INFORMATION
  Report Type: Spontaneous
  Country: US (occurrence: None)
  Receive Date: 20221006
  Receipt Date: 20221006
  Transmission Date: 20230113
  Serious: Yes (Disabling, Other)
  Sender: FDA-Public Use
  Company Number: None

PATIENT
  Age: 19 Year
  Sex: Male

DRUGS (10)
  1. CABENUVA [Suspect]
     Active Substance: CABOTEGRAVIR\RILPIVIRINE
  2. ADDERALL [Concomitant]
     Active Substance: AMPHETAMINE ASPARTATE\AMPHETAMINE SULFATE\DEXTROAMPHETAMINE SACCHARATE\DEXTROAMPHETAMINE SULFATE
  3. ALBUTEROL [Concomitant]
     Active Substance: ALBUTEROL
  4. CLONAZEPAM [Concomitant]
     Active Substance: CLONAZEPAM
  5. Nebuliser [Concomitant]
  6. SEROQUEL [Concomitant]
     Active Substance: QUETIAPINE FUMARATE
  7. FOLATE SODIUM [Concomitant]
     Active Substance: FOLATE SODIUM
  8. TESTOSTERONE [Concomitant]
     Active Substance: TESTOSTERONE
  9. VITAMIN D [Concomitant]
     Active Substance: VITAMIN D NOS
  10. ZINC [Concomitant]
     Active Substance: ZINC

REACTIONS (1)
  - Product use in unapproved indication [None]

NARRATIVE: CASE EVENT DATE: 20190415
